FAERS Safety Report 4376594-1 (Version None)
Quarter: 2004Q2

REPORT INFORMATION
  Report Type: 
  Country: None (occurrence: None)
  Receive Date: 20040608
  Receipt Date: 20040525
  Transmission Date: 20050107
  Serious: Yes (Death)
  Sender: FDA-Public Use
  Company Number: US-JNJFOC-20040506575

PATIENT
  Age: 87 Year
  Sex: Male

DRUGS (1)
  1. REGRANEX (BECAPLERMIN) GEL [Suspect]

REACTIONS (1)
  - DEATH [None]
